FAERS Safety Report 7796668-2 (Version None)
Quarter: 2011Q4

REPORT INFORMATION
  Report Type: 
  Country: None (occurrence: None)
  Receive Date: 20111005
  Receipt Date: 20110927
  Transmission Date: 20120403
  Serious: Yes (Life-Threatening, Hospitalization)
  Sender: FDA-Public Use
  Company Number: US-BAYER-2011-038402

PATIENT
  Age: 22 Year
  Sex: Female
  Weight: 63.492 kg

DRUGS (3)
  1. APAP TAB [Concomitant]
  2. EXCEDRIN (MIGRAINE) [Concomitant]
  3. YAZ [Suspect]
     Indication: CONTRACEPTION
     Dosage: UNK
     Route: 048
     Dates: start: 20080101

REACTIONS (7)
  - CEREBRAL ARTERY THROMBOSIS [None]
  - PAIN [None]
  - CEREBROVASCULAR ACCIDENT [None]
  - COGNITIVE DISORDER [None]
  - INJURY [None]
  - NERVOUS SYSTEM DISORDER [None]
  - ANXIETY [None]
